FAERS Safety Report 6615438-1 (Version None)
Quarter: 2010Q1

REPORT INFORMATION
  Report Type: 
  Country: None (occurrence: None)
  Receive Date: 20100305
  Receipt Date: 20100106
  Transmission Date: 20100710
  Serious: No
  Sender: FDA-Public Use
  Company Number: A0838036A

PATIENT
  Age: 60 Year
  Sex: Male

DRUGS (5)
  1. REQUIP [Suspect]
     Indication: RESTLESS LEGS SYNDROME
     Dosage: 1MG PER DAY
     Route: 048
     Dates: start: 20090101
  2. CONCERTA [Suspect]
     Dosage: 36MG PER DAY
     Route: 048
     Dates: start: 20091201, end: 20091230
  3. CYMBALTA [Suspect]
     Indication: DEPRESSION
     Dosage: 60MG TWICE PER DAY
     Route: 048
     Dates: start: 20080101, end: 20091230
  4. WELLBUTRIN SR [Concomitant]
  5. CLONAZEPAM [Concomitant]

REACTIONS (5)
  - ABNORMAL DREAMS [None]
  - ANXIETY [None]
  - DRUG INEFFECTIVE [None]
  - SEDATION [None]
  - SOMNOLENCE [None]
